FAERS Safety Report 4402242-8 (Version None)
Quarter: 2004Q3

REPORT INFORMATION
  Report Type: 
  Country: None (occurrence: None)
  Receive Date: 20040716
  Receipt Date: 20040709
  Transmission Date: 20050211
  Serious: Yes (Other)
  Sender: FDA-Public Use
  Company Number: HQWYE971610JUL04

PATIENT
  Age: 68 Year
  Sex: Male

DRUGS (1)
  1. CORDAREX (AMIODARONE, INJECTION) [Suspect]
     Indication: ATRIAL FIBRILLATION
     Dosage: 1050 MG 1X PER 1 DAY INTRAVENOUS
     Route: 042
     Dates: start: 20040319, end: 20040319

REACTIONS (1)
  - CLONIC CONVULSION [None]
